FAERS Safety Report 13934953 (Version 1)
Quarter: 2017Q3

REPORT INFORMATION
  Report Type: Spontaneous
  Country: US (occurrence: None)
  Receive Date: 20170901
  Receipt Date: 20170901
  Transmission Date: 20171127
  Serious: Yes (Other)
  Sender: FDA-Public Use
  Company Number: None

PATIENT
  Age: 69 Year
  Sex: Male

DRUGS (2)
  1. DOFETILIDE. [Suspect]
     Active Substance: DOFETILIDE
     Indication: ATRIAL FIBRILLATION
     Dates: start: 20170706, end: 20170706
  2. DOFETILIDE. [Suspect]
     Active Substance: DOFETILIDE
     Indication: MITRAL VALVE REPLACEMENT
     Dates: start: 20170706, end: 20170706

REACTIONS (1)
  - Torsade de pointes [None]

NARRATIVE: CASE EVENT DATE: 20170706
